FAERS Safety Report 4821469-4 (Version None)
Quarter: 2005Q4

REPORT INFORMATION
  Report Type: 
  Country: None (occurrence: None)
  Receive Date: 20051103
  Receipt Date: 20051018
  Transmission Date: 20060501
  Serious: Yes (Death, Hospitalization, Other)
  Sender: FDA-Public Use
  Company Number: USA040875520

PATIENT
  Age: 82 Year
  Sex: Female

DRUGS (3)
  1. FORTEO [Suspect]
     Indication: OSTEOPOROSIS
     Dosage: 20 UG DAY
     Dates: start: 20040601, end: 20050101
  2. PROTONIX [Concomitant]
  3. TUMS (CALCIUM CARBONATE) [Concomitant]

REACTIONS (7)
  - BACK PAIN [None]
  - BLOOD POTASSIUM INCREASED [None]
  - BONE PAIN [None]
  - COLON CANCER METASTATIC [None]
  - HEADACHE [None]
  - METASTASES TO LIVER [None]
  - PHARMACEUTICAL PRODUCT COMPLAINT [None]
